FAERS Safety Report 7360530-X (Version None)
Quarter: 2011Q1

REPORT INFORMATION
  Report Type: 
  Country: None (occurrence: None)
  Receive Date: 20110318
  Receipt Date: 20110314
  Transmission Date: 20110831
  Serious: No
  Sender: FDA-Public Use
  Company Number: US-PFIZER INC-2011056102

PATIENT
  Sex: Female
  Weight: 42.63 kg

DRUGS (3)
  1. PREMARIN [Suspect]
     Indication: OFF LABEL USE
  2. PREMARIN [Suspect]
     Indication: URINARY TRACT INFECTION
  3. PREMARIN [Suspect]
     Indication: HORMONE REPLACEMENT THERAPY
     Dosage: UNK
     Route: 067
     Dates: start: 20110311

REACTIONS (2)
  - VULVOVAGINAL BURNING SENSATION [None]
  - BURNING SENSATION [None]
